FAERS Safety Report 6235546-7 (Version None)
Quarter: 2009Q2

REPORT INFORMATION
  Report Type: 
  Country: None (occurrence: None)
  Receive Date: 20090618
  Receipt Date: 20081208
  Transmission Date: 20091009
  Serious: No
  Sender: FDA-Public Use
  Company Number: US-ASTRAZENECA-2008UW27237

PATIENT
  Age: 72 Year
  Sex: Female
  Weight: 68 kg

DRUGS (5)
  1. RHINOCORT [Suspect]
     Indication: HYPERSENSITIVITY
     Dosage: 32 UG DAILY
     Route: 045
     Dates: start: 20080501, end: 20081001
  2. RHINOCORT [Suspect]
     Dosage: 32 UG TWO TIMES DAILY
     Route: 045
     Dates: start: 20081001, end: 20081206
  3. ALLEGRA [Concomitant]
  4. SYNTHROID [Concomitant]
  5. ZOCOR [Concomitant]

REACTIONS (1)
  - SKIN IRRITATION [None]
